FAERS Safety Report 6354813-X (Version None)
Quarter: 2009Q4

REPORT INFORMATION
  Report Type: 
  Country: None (occurrence: None)
  Receive Date: 20090909
  Receipt Date: 20090901
  Transmission Date: 20100525
  Serious: Yes (Hospitalization)
  Sender: FDA-Public Use
  Company Number: DSA_33709_2009

PATIENT
  Sex: Female
  Weight: 68.0396 kg

DRUGS (3)
  1. XENAZINE [Suspect]
     Indication: DYSKINESIA
     Dosage: (12.5 MG BID ORAL)
     Route: 048
     Dates: start: 20090210
  2. ANTIBIOTICS [Suspect]
     Indication: URINARY TRACT INFECTION
     Dosage: (DF)
     Dates: start: 20090501
  3. RISPERDAL [Concomitant]

REACTIONS (4)
  - DECREASED APPETITE [None]
  - DIARRHOEA [None]
  - NAUSEA [None]
  - URINARY TRACT INFECTION [None]
